FAERS Safety Report 6803049-4 (Version None)
Quarter: 2010Q2

REPORT INFORMATION
  Report Type: 
  Country: None (occurrence: None)
  Receive Date: 20100628
  Receipt Date: 20100621
  Transmission Date: 20101027
  Serious: Yes (Life-Threatening)
  Sender: FDA-Public Use
  Company Number: JP-ASTRAZENECA-2010SE27824

PATIENT
  Age: 10738 Day
  Sex: Male
  Weight: 66.8 kg

DRUGS (14)
  1. SEROQUEL [Suspect]
     Indication: BIPOLAR I DISORDER
     Route: 048
     Dates: start: 20100417, end: 20100513
  2. HIBERNA [Suspect]
     Indication: BIPOLAR I DISORDER
     Route: 048
     Dates: start: 20100416, end: 20100513
  3. LITHIUM CARBONATE [Concomitant]
     Indication: BIPOLAR I DISORDER
     Route: 048
     Dates: start: 20090131
  4. DEPAS [Concomitant]
     Indication: BIPOLAR I DISORDER
     Route: 048
     Dates: start: 20080621
  5. VEGETAMIN B [Concomitant]
     Indication: BIPOLAR I DISORDER
     Route: 048
     Dates: start: 20100416
  6. SOMELIN [Concomitant]
     Indication: BIPOLAR I DISORDER
     Route: 048
     Dates: start: 20100416
  7. LENDORMIN [Concomitant]
     Indication: BIPOLAR I DISORDER
     Route: 048
     Dates: start: 20090131
  8. LEVOTOMIN [Concomitant]
     Indication: BIPOLAR I DISORDER
     Route: 048
     Dates: start: 20100416
  9. RIVOTRIL [Concomitant]
     Indication: BIPOLAR I DISORDER
     Dates: start: 20080611, end: 20100415
  10. SERTRALINE HCL [Concomitant]
     Indication: BIPOLAR I DISORDER
     Dates: start: 20091121, end: 20100415
  11. FLUNITRAZEPAM [Concomitant]
     Indication: BIPOLAR I DISORDER
     Dates: start: 20080611, end: 20100415
  12. NAUZELIN [Concomitant]
     Indication: BIPOLAR I DISORDER
     Dates: start: 20080621, end: 20100415
  13. MAGMITT [Concomitant]
     Dates: start: 20100423
  14. AMLODIN [Concomitant]
     Indication: HYPERTENSION
     Dates: start: 20100419, end: 20100513

REACTIONS (1)
  - BONE MARROW FAILURE [None]
